FAERS Safety Report 8978707 (Version 1)
Quarter: 2012Q4

REPORT INFORMATION
  Report Type: Spontaneous
  Country: US (occurrence: None)
  Receive Date: 20121218
  Receipt Date: 20121218
  Transmission Date: 20130627
  Serious: Yes (Death, Other)
  Sender: FDA-Public Use
  Company Number: None

PATIENT
  Age: 59 Year
  Sex: Male
  Weight: 70.31 kg

DRUGS (4)
  1. PROAIR [Suspect]
     Indication: PROPHYLACTIC
     Dates: start: 20091220, end: 20091220
  2. FORADIL [Concomitant]
  3. PULMACORT [Concomitant]
  4. LISINOPRIL [Concomitant]

REACTIONS (5)
  - Loss of consciousness [None]
  - Anaphylactic reaction [None]
  - Anoxia [None]
  - Cardiac arrest [None]
  - Brain injury [None]
